FAERS Safety Report 10112354 (Version 1)
Quarter: 2014Q2

REPORT INFORMATION
  Report Type: Report from Study
  Country: GB (occurrence: GB)
  Receive Date: 20140425
  Receipt Date: 20140425
  Transmission Date: 20141212
  Serious: Yes (Hospitalization)
  Sender: FDA-Public Use
  Company Number: GB-ABBVIE-14P-167-1227035-00

PATIENT
  Age: 72 Year
  Sex: Male

DRUGS (2)
  1. HUMIRA [Suspect]
     Indication: PSORIATIC ARTHROPATHY
     Route: 058
     Dates: start: 20050815
  2. METHOTREXAAT [Concomitant]
     Indication: RHEUMATOID ARTHRITIS

REACTIONS (3)
  - Convulsion [Unknown]
  - Blood magnesium decreased [Unknown]
  - Blood calcium decreased [Unknown]
